FAERS Safety Report 6934781-X (Version None)
Quarter: 2010Q3

REPORT INFORMATION
  Report Type: 
  Country: None (occurrence: None)
  Receive Date: 20100820
  Receipt Date: 20100805
  Transmission Date: 20110219
  Serious: Yes (Other)
  Sender: FDA-Public Use
  Company Number: PHHY2010JP43809

PATIENT
  Sex: Male
  Weight: 63 kg

DRUGS (3)
  1. ZOMETA [Suspect]
     Indication: METASTASES TO BONE
     Dosage: 4 MG
     Route: 041
     Dates: start: 20081022, end: 20100203
  2. DOCETAXEL HYDRATE [Concomitant]
     Dosage: 114.8 MG
     Route: 041
     Dates: start: 20081022, end: 20090805
  3. LEUPLIN [Concomitant]
     Dosage: 11.25 MG
     Route: 058
     Dates: start: 20061129, end: 20100301

REACTIONS (6)
  - BONE DISORDER [None]
  - GINGIVAL DISORDER [None]
  - GINGIVAL SWELLING [None]
  - ORAL CAVITY FISTULA [None]
  - OSTEONECROSIS OF JAW [None]
  - PURULENT DISCHARGE [None]
